FAERS Safety Report 7144547 (Version 4)
Quarter: 2015Q4

REPORT INFORMATION
  Report Type: Spontaneous
  Country: US (occurrence: US)
  Receive Date: 20091009
  Receipt Date: 20151209
  Transmission Date: 20160305
  Serious: Yes (Hospitalization, Other)
  Sender: FDA-Public Use
  Company Number: US-BAYER-200934737NA

PATIENT
  Age: 46 Year
  Sex: Female
  Weight: 111.57 kg

DRUGS (4)
  1. REMERON [Concomitant]
     Active Substance: MIRTAZAPINE
     Indication: DEPRESSION
  2. YAZ [Suspect]
     Active Substance: DROSPIRENONE\ETHINYL ESTRADIOL
     Indication: MOOD SWINGS
     Dosage: 1 DF (DAILY DOSE), QD,
     Dates: start: 200503, end: 20090314
  3. LEVOTHYROXINE. [Concomitant]
     Active Substance: LEVOTHYROXINE
     Dosage: UNK
     Dates: start: 2005
  4. SYNTHROID [Concomitant]
     Active Substance: LEVOTHYROXINE SODIUM

REACTIONS (9)
  - Deep vein thrombosis [Recovered/Resolved]
  - Hemiplegia [Not Recovered/Not Resolved]
  - Amnesia [Not Recovered/Not Resolved]
  - Injury [None]
  - Embolic stroke [None]
  - Pain [None]
  - Pulmonary embolism [Unknown]
  - Thyroid disorder [None]
  - Cerebrovascular accident [Not Recovered/Not Resolved]

NARRATIVE: CASE EVENT DATE: 20090314
